FAERS Safety Report 10142689 (Version 3)
Quarter: 2014Q2

REPORT INFORMATION
  Report Type: Spontaneous
  Country: IN (occurrence: IN)
  Receive Date: 20140430
  Receipt Date: 20140512
  Transmission Date: 20141212
  Serious: Yes (Hospitalization, Other)
  Sender: FDA-Public Use
  Company Number: IN-RANBAXY-2014RR-80496

PATIENT
  Age: 28 Year
  Sex: Female

DRUGS (1)
  1. AMLODIPINE [Suspect]
     Indication: PRODUCT USED FOR UNKNOWN INDICATION
     Dosage: 50 TABLETS OF 5 MG
     Route: 065

REACTIONS (7)
  - Shock [Recovered/Resolved]
  - Overdose [Recovered/Resolved]
  - Gastrointestinal hypomotility [Recovering/Resolving]
  - Renal failure acute [Recovering/Resolving]
  - Capillary leak syndrome [Recovering/Resolving]
  - Pleural effusion [Recovering/Resolving]
  - Acute lung injury [Recovering/Resolving]
